FAERS Safety Report 16528583 (Version 1)
Quarter: 2019Q3

REPORT INFORMATION
  Report Type: Report from Study
  Country: CR (occurrence: CR)
  Receive Date: 20190703
  Receipt Date: 20190703
  Transmission Date: 20191004
  Serious: Yes (Other)
  Sender: FDA-Public Use
  Company Number: PHHY2017CR134040

PATIENT
  Age: 30 Year
  Sex: Female

DRUGS (4)
  1. XOLAIR [Suspect]
     Active Substance: OMALIZUMAB
     Indication: URTICARIA
     Dosage: 2 DF, QMO (300 MG)
     Route: 065
  2. LORATADINE. [Concomitant]
     Active Substance: LORATADINE
     Indication: PRODUCT USED FOR UNKNOWN INDICATION
     Dosage: 1 DF, QD
     Route: 048
  3. MONTELUKAST SODIUM. [Suspect]
     Active Substance: MONTELUKAST SODIUM
     Indication: URTICARIA
     Dosage: 1 DF, QD
     Route: 048
  4. PROPONOL [Concomitant]
     Indication: PRODUCT USED FOR UNKNOWN INDICATION
     Route: 065

REACTIONS (28)
  - Anxiety [Unknown]
  - Facial pain [Unknown]
  - Headache [Unknown]
  - Hypersensitivity [Unknown]
  - Arrhythmia [Recovered/Resolved]
  - Pyrexia [Unknown]
  - Back pain [Unknown]
  - Dizziness [Recovering/Resolving]
  - Pain in extremity [Unknown]
  - Body temperature increased [Unknown]
  - Loss of consciousness [Unknown]
  - Hypoaesthesia [Unknown]
  - Pruritus [Unknown]
  - Syncope [Unknown]
  - Malaise [Unknown]
  - Blister [Unknown]
  - Gait disturbance [Unknown]
  - Fall [Unknown]
  - Urticaria [Unknown]
  - Fatigue [Unknown]
  - Heart rate irregular [Unknown]
  - Pain [Unknown]
  - Inflammation [Unknown]
  - Rash [Recovered/Resolved]
  - Injection site pain [Recovering/Resolving]
  - Pigmentation disorder [Unknown]
  - Chest pain [Unknown]
  - Hypersensitivity [Recovered/Resolved]
